FAERS Safety Report 6277924-6 (Version None)
Quarter: 2009Q3

REPORT INFORMATION
  Report Type: 
  Country: None (occurrence: None)
  Receive Date: 20090722
  Receipt Date: 20090715
  Transmission Date: 20100115
  Serious: Yes (Hospitalization)
  Sender: FDA-Public Use
  Company Number: DE-BAXTER-2009BH011604

PATIENT
  Age: 78 Year
  Sex: Male

DRUGS (10)
  1. ENDOXAN BAXTER [Suspect]
     Indication: TEMPORAL ARTERITIS
     Route: 048
     Dates: end: 20090301
  2. PREDNISOLONE [Suspect]
     Indication: TEMPORAL ARTERITIS
     Route: 048
  3. PREDNISOLONE [Suspect]
     Route: 048
     Dates: start: 20090101
  4. PANTOZOL [Concomitant]
     Indication: GASTRITIS
     Route: 048
  5. PREGABALIN [Concomitant]
     Indication: TEMPORAL ARTERITIS
     Route: 048
  6. XALATAN [Concomitant]
     Indication: GLAUCOMA
     Route: 047
  7. TIM-OPHTAL [Concomitant]
     Indication: GLAUCOMA
     Route: 047
  8. FALITHROM ^HEXAL^ [Concomitant]
     Indication: ATRIAL FIBRILLATION
     Route: 048
  9. LEVOTHYROXINE SODIUM [Concomitant]
     Indication: GOITRE
     Route: 048
  10. ALLOPURINOL [Concomitant]
     Indication: HYPERURICAEMIA
     Route: 048

REACTIONS (1)
  - RESPIRATORY TRACT INFECTION [None]
